FAERS Safety Report 4684373-0 (Version None)
Quarter: 2005Q2

REPORT INFORMATION
  Report Type: 
  Country: None (occurrence: None)
  Receive Date: 20050531
  Receipt Date: 20040622
  Transmission Date: 20051028
  Serious: Yes (Hospitalization)
  Sender: FDA-Public Use
  Company Number: 200414817US

PATIENT
  Age: 41 Year
  Sex: Male
  Weight: 105 kg

DRUGS (1)
  1. LOVENOX [Suspect]

REACTIONS (3)
  - INJECTION SITE INFLAMMATION [None]
  - INJECTION SITE REACTION [None]
  - NECROSIS [None]
